FAERS Safety Report 23623112 (Version 3)
Quarter: 2024Q2

REPORT INFORMATION
  Report Type: Spontaneous
  Country: JP (occurrence: JP)
  Receive Date: 20240312
  Receipt Date: 20240501
  Transmission Date: 20240716
  Serious: Yes (Hospitalization)
  Sender: FDA-Public Use
  Company Number: JP-ferring-EVA202400338FERRINGPH

PATIENT

DRUGS (8)
  1. MINIRIN [Suspect]
     Active Substance: DESMOPRESSIN ACETATE
     Indication: Diabetes insipidus
     Dosage: 2.5 UG, DAILY
     Route: 045
     Dates: start: 20240306
  2. MINIRIN [Suspect]
     Active Substance: DESMOPRESSIN ACETATE
     Dosage: 2.5 UG, DAILY
     Route: 045
  3. DESMOPRESSIN ACETATE [Suspect]
     Active Substance: DESMOPRESSIN ACETATE
     Indication: Diabetes insipidus
     Dosage: 60 UG, DAILY
     Route: 048
  4. DESMOPRESSIN ACETATE [Suspect]
     Active Substance: DESMOPRESSIN ACETATE
     Dosage: 60 UG, 2 TIMES DAILY
     Route: 048
  5. DESMOPRESSIN ACETATE [Suspect]
     Active Substance: DESMOPRESSIN ACETATE
     Dosage: 60 UG
     Route: 048
  6. PREDNISOLONE [Concomitant]
     Active Substance: PREDNISOLONE
     Route: 065
  7. LEVOTHYROXINE [Concomitant]
     Active Substance: LEVOTHYROXINE\LEVOTHYROXINE SODIUM
     Route: 065
  8. FYCOMPA [Concomitant]
     Active Substance: PERAMPANEL
     Route: 065

REACTIONS (7)
  - Status epilepticus [Recovered/Resolved]
  - Urine output decreased [Unknown]
  - Hyponatraemia [Unknown]
  - Therapy interrupted [Recovered/Resolved]
  - Product prescribing issue [Recovered/Resolved]
  - Labelled drug-disease interaction medication error [Unknown]
  - Contraindicated product administered [Unknown]

NARRATIVE: CASE EVENT DATE: 20240301
